FAERS Safety Report 13829938 (Version 2)
Quarter: 2017Q3

REPORT INFORMATION
  Report Type: Spontaneous
  Country: DE (occurrence: DE)
  Receive Date: 20170803
  Receipt Date: 20170804
  Transmission Date: 20171127
  Serious: Yes (Death)
  Sender: FDA-Public Use
  Company Number: PHHY2017DE113967

PATIENT
  Age: 53 Year
  Sex: Male

DRUGS (2)
  1. TENOFOVIR DISOPROXIL [Suspect]
     Active Substance: TENOFOVIR DISOPROXIL
     Indication: HEPATITIS B
     Route: 065
  2. ENTECAVIR. [Suspect]
     Active Substance: ENTECAVIR
     Indication: HEPATITIS B
     Route: 065

REACTIONS (2)
  - Hepatocellular carcinoma [Fatal]
  - Therapeutic response decreased [Fatal]

NARRATIVE: CASE EVENT DATE: 201206
